FAERS Safety Report 6028208-2 (Version None)
Quarter: 2008Q4

REPORT INFORMATION
  Report Type: 
  Country: None (occurrence: None)
  Receive Date: 20081231
  Receipt Date: 20081231
  Transmission Date: 20090506
  Serious: No
  Sender: FDA-Public Use
  Company Number: None

PATIENT
  Sex: Female
  Weight: 53.18 kg

DRUGS (4)
  1. AMLODIPINE [Suspect]
     Dosage: 2.5MG TABLET 2.5 MG QD
     Route: 048
     Dates: start: 20081215, end: 20081230
  2. CITALOPRAM HYDROBROMIDE [Concomitant]
  3. METOPROLOL TARTRATE [Concomitant]
  4. TRAZODONE HCL [Concomitant]

REACTIONS (1)
  - PALPITATIONS [None]
